FAERS Safety Report 4701562-7 (Version None)
Quarter: 2005Q2

REPORT INFORMATION
  Report Type: 
  Country: None (occurrence: None)
  Receive Date: 20050628
  Receipt Date: 20050614
  Transmission Date: 20051028
  Serious: Yes (Hospitalization)
  Sender: FDA-Public Use
  Company Number: 2005GB01181

PATIENT
  Sex: Female

DRUGS (1)
  1. LOSEC [Suspect]
     Route: 048
     Dates: start: 20050501, end: 20050501

REACTIONS (5)
  - ASTHENIA [None]
  - FATIGUE [None]
  - HOT FLUSH [None]
  - KIDNEY INFECTION [None]
  - URINARY TRACT INFECTION [None]
